FAERS Safety Report 6227431-1 (Version None)
Quarter: 2009Q2

REPORT INFORMATION
  Report Type: 
  Country: None (occurrence: None)
  Receive Date: 20090612
  Receipt Date: 20090608
  Transmission Date: 20091009
  Serious: Yes (Death, Hospitalization)
  Sender: FDA-Public Use
  Company Number: US-TEVA-197690USA

PATIENT
  Age: 83 Year
  Sex: Male

DRUGS (1)
  1. PAROXETINE HYDROCHLORIDE 10 MG, 20 MG, 30 MG + 40 MG TABLETS [Suspect]
     Indication: DEPRESSION
     Route: 048

REACTIONS (1)
  - LIVER DISORDER [None]
